FAERS Safety Report 5282907-9 (Version None)
Quarter: 2007Q1

REPORT INFORMATION
  Report Type: 
  Country: None (occurrence: None)
  Receive Date: 20070328
  Receipt Date: 20070328
  Transmission Date: 20070707
  Serious: Yes (Hospitalization)
  Sender: FDA-Public Use
  Company Number: None

PATIENT
  Age: 55 Year
  Sex: Female

DRUGS (2)
  1. ABRAXANE [Suspect]
     Indication: OVARIAN CANCER RECURRENT
     Dosage: 518.0MG EVERY 28 DAYS 042
     Dates: start: 20070223
  2. CARBOPLATIN [Suspect]
     Indication: OVARIAN CANCER RECURRENT
     Dosage: 158.0MG D1,D8,D15 042
     Dates: start: 20070209

REACTIONS (2)
  - PAIN [None]
  - PYREXIA [None]
